FAERS Safety Report 8135505 (Version 3)
Quarter: 2018Q3

REPORT INFORMATION
  Report Type: Spontaneous
  Country: FR (occurrence: FR)
  Receive Date: 20110914
  Receipt Date: 20180906
  Transmission Date: 20181010
  Serious: Yes (Other)
  Sender: FDA-Public Use
  Company Number: FR-ROCHE-801556

PATIENT
  Age: 46 Year
  Sex: Female

DRUGS (6)
  1. AVASTIN [Suspect]
     Active Substance: BEVACIZUMAB
     Route: 042
  2. PACLITAXEL. [Concomitant]
     Active Substance: PACLITAXEL
     Dosage: CHEMOTHERAPY WITH TAXOL WEEKLY WAS STARTED
     Route: 065
  3. AVASTIN [Suspect]
     Active Substance: BEVACIZUMAB
     Indication: BREAST CANCER
     Route: 042
  4. TAXOTERE [Suspect]
     Active Substance: DOCETAXEL
     Indication: BREAST CANCER
     Route: 042
     Dates: start: 20110624, end: 20110624
  5. TAXOTERE [Suspect]
     Active Substance: DOCETAXEL
     Route: 042
     Dates: start: 20110722, end: 20110722
  6. PACLITAXEL. [Concomitant]
     Active Substance: PACLITAXEL
     Dosage: SECOND CYCLE
     Route: 065

REACTIONS (2)
  - Periodontal disease [Recovered/Resolved with Sequelae]
  - Mouth ulceration [Unknown]

NARRATIVE: CASE EVENT DATE: 20110725
